FAERS Safety Report 15575943 (Version 2)
Quarter: 2018Q4

REPORT INFORMATION
  Report Type: Spontaneous
  Country: CA (occurrence: CA)
  Receive Date: 20181101
  Receipt Date: 20181217
  Transmission Date: 20190205
  Serious: Yes (Other)
  Sender: FDA-Public Use
  Company Number: CA-OTSUKA-2018_034617

PATIENT
  Age: 34 Year
  Sex: Female
  Weight: 52 kg

DRUGS (3)
  1. LITHIUM. [Concomitant]
     Active Substance: LITHIUM
     Indication: PRODUCT USED FOR UNKNOWN INDICATION
     Dosage: UNK
     Route: 065
  2. QUETIAPINE. [Concomitant]
     Active Substance: QUETIAPINE
     Indication: PRODUCT USED FOR UNKNOWN INDICATION
     Dosage: UNK
     Route: 065
  3. ABILIFY MAINTENA [Suspect]
     Active Substance: ARIPIPRAZOLE
     Indication: BIPOLAR DISORDER
     Dosage: 300 MG, UNK (1 EVERY 4 WEEK (S))
     Route: 030
     Dates: start: 20170619, end: 20180522

REACTIONS (7)
  - Thalassaemia beta [Unknown]
  - Thrombocytosis [Unknown]
  - Skin disorder [Unknown]
  - Prescribed underdose [Unknown]
  - Rash generalised [Unknown]
  - Eosinophilia [Unknown]
  - Pruritus [Unknown]

NARRATIVE: CASE EVENT DATE: 20170619
